FAERS Safety Report 12460051 (Version 1)
Quarter: 2016Q2

REPORT INFORMATION
  Report Type: Spontaneous
  Country: US (occurrence: US)
  Receive Date: 20160613
  Receipt Date: 20160613
  Transmission Date: 20160815
  Serious: Yes (Other)
  Sender: FDA-Public Use
  Company Number: US-PFIZER INC-2016286882

PATIENT
  Age: 10 Year
  Sex: Male

DRUGS (2)
  1. RUXOLITINIB [Suspect]
     Active Substance: RUXOLITINIB
     Indication: LEUKAEMIA
     Dosage: 50 MG/M2, 2X/DAY
     Route: 048
     Dates: start: 20160523, end: 20160530
  2. CYTARABINE. [Suspect]
     Active Substance: CYTARABINE
     Indication: LEUKAEMIA
     Dosage: 500 MG/M2, 1X/DAY
     Dates: start: 20160530, end: 20160530

REACTIONS (1)
  - Neutropenic sepsis [Unknown]

NARRATIVE: CASE EVENT DATE: 201605
